FAERS Safety Report 8231493-X (Version None)
Quarter: 2012Q1

REPORT INFORMATION
  Report Type: 
  Country: None (occurrence: None)
  Receive Date: 20120323
  Receipt Date: 20120313
  Transmission Date: 20120608
  Serious: Yes (Hospitalization)
  Sender: FDA-Public Use
  Company Number: PHHY2012JP023144

PATIENT
  Sex: Male

DRUGS (14)
  1. ALDOMET [Concomitant]
     Indication: HYPERTENSION
     Dosage: 750 MG
     Route: 048
     Dates: start: 20101216
  2. ALDOMET [Concomitant]
     Dosage: 1500 MG
     Route: 048
  3. RASILEZ [Concomitant]
     Indication: HYPERTENSION
     Dosage: 150 MG
     Route: 048
     Dates: start: 20101202, end: 20101215
  4. ASPIRIN [Concomitant]
     Indication: PROPHYLAXIS
     Dosage: UNK
     Dates: start: 20100603
  5. ETHYL ICOSAPENTATE [Concomitant]
     Indication: PROPHYLAXIS
     Dosage: 1800 MG
     Route: 048
     Dates: start: 20100617
  6. VALSARTAN, AMLODIPINE [Suspect]
     Indication: HYPERTENSION
     Dosage: 1 DF DAILY
     Route: 048
     Dates: start: 20100902, end: 20110609
  7. GLYBURIDE [Concomitant]
     Dosage: 2.5 MG
     Route: 048
  8. VALSARTAN, AMLODIPINE [Suspect]
     Dosage: 1 DF DALIY
     Route: 048
     Dates: start: 20110701
  9. DOXAZOSIN MESYLATE [Concomitant]
     Dosage: 8 MG
     Route: 048
  10. METFORMIN HCL [Concomitant]
     Dosage: 500 MG
  11. NORVASC [Concomitant]
     Indication: HYPERTENSION
     Dosage: 5 MG
     Route: 048
     Dates: start: 20100902, end: 20101013
  12. DIOVAN [Concomitant]
     Indication: HYPERTENSION
     Dosage: 80 MG
     Route: 048
     Dates: start: 20100902
  13. BASEN OD [Concomitant]
     Dosage: 0.6 MG
  14. DOXAZOSIN MESYLATE [Concomitant]
     Indication: HYPERTENSION
     Dosage: 4 MG
     Route: 048

REACTIONS (3)
  - CEREBRAL HAEMORRHAGE [None]
  - BLOOD PRESSURE INADEQUATELY CONTROLLED [None]
  - SENSATION OF HEAVINESS [None]
